FAERS Safety Report 8005822-6 (Version None)
Quarter: 2011Q4

REPORT INFORMATION
  Report Type: 
  Country: None (occurrence: None)
  Receive Date: 20111223
  Receipt Date: 20111221
  Transmission Date: 20120403
  Serious: Yes (Death, Other)
  Sender: FDA-Public Use
  Company Number: US-PFIZER INC-2011147835

PATIENT
  Sex: Male

DRUGS (1)
  1. CHANTIX [Suspect]
     Indication: SMOKING CESSATION THERAPY
     Dosage: STARTER PACK
     Dates: start: 20070201

REACTIONS (8)
  - INSOMNIA [None]
  - NIGHTMARE [None]
  - AGGRESSION [None]
  - COMPLETED SUICIDE [None]
  - DEPRESSION [None]
  - MOOD SWINGS [None]
  - APHAGIA [None]
  - ASPHYXIA [None]
